FAERS Safety Report 7945491-4 (Version None)
Quarter: 2011Q4

REPORT INFORMATION
  Report Type: 
  Country: None (occurrence: None)
  Receive Date: 20111121
  Receipt Date: 20111110
  Transmission Date: 20120403
  Serious: Yes (Life-Threatening, Hospitalization, Other)
  Sender: FDA-Public Use
  Company Number: WAES 1009FRA00073

PATIENT
  Age: 55 Year
  Sex: Female

DRUGS (16)
  1. CHONDROITIN SULFATE SODIUM [Concomitant]
  2. ASPIRIN [Concomitant]
  3. ENOXAPARIN SODIUM [Concomitant]
  4. ESOMEPRAZOLE [Concomitant]
  5. ISENTRESS [Suspect]
     Indication: HIV INFECTION
     Dosage: 800 MG/BID PO
     Route: 048
     Dates: start: 20100803, end: 20100920
  6. ATOVASTATIN CALCIUM [Concomitant]
  7. MOXIFLOXACIN HYDROCHLORIDE [Concomitant]
  8. PREDNISONE [Concomitant]
  9. VALACYCLOVIR HYDROCHLORIDE [Concomitant]
  10. TRAMADOL HCL [Concomitant]
  11. MYCOPHENOLATE MOFETIL [Concomitant]
  12. TACROLIMUS [Concomitant]
  13. AMLODIPINE [Concomitant]
  14. LANSOPRAZOLE [Concomitant]
  15. EMTRICITABINE + TENOFOVIR DISOPROXIL FUM [Concomitant]
  16. ETHAMBUTOL HYDROCHLORIDE [Concomitant]

REACTIONS (11)
  - HEPATIC ARTERY THROMBOSIS [None]
  - HEPATIC NECROSIS [None]
  - PERITONEAL HAEMORRHAGE [None]
  - STAPHYLOCOCCAL INFECTION [None]
  - DRUG INTOLERANCE [None]
  - PYREXIA [None]
  - PERITONITIS BACTERIAL [None]
  - LIVER TRANSPLANT [None]
  - ENTEROCOCCUS TEST POSITIVE [None]
  - CYTOLYTIC HEPATITIS [None]
  - HEPATITIS FULMINANT [None]
